FAERS Safety Report 7218317-4 (Version None)
Quarter: 2011Q1

REPORT INFORMATION
  Report Type: 
  Country: None (occurrence: None)
  Receive Date: 20110110
  Receipt Date: 20110105
  Transmission Date: 20110831
  Serious: Yes (Other)
  Sender: FDA-Public Use
  Company Number: US-AMGEN-USASP2011000951

PATIENT

DRUGS (1)
  1. ENBREL [Suspect]
     Indication: RHEUMATOID ARTHRITIS
     Dosage: 50 MG, QWK
     Dates: start: 20091028

REACTIONS (8)
  - DIPLOPIA [None]
  - TEMPERATURE INTOLERANCE [None]
  - MUSCLE TIGHTNESS [None]
  - FIBROMYALGIA [None]
  - NIGHT BLINDNESS [None]
  - FATIGUE [None]
  - GAIT DISTURBANCE [None]
  - ARTHRITIS [None]
